FAERS Safety Report 14019680 (Version 1)
Quarter: 2017Q3

REPORT INFORMATION
  Report Type: Spontaneous
  Country: US (occurrence: US)
  Receive Date: 20170928
  Receipt Date: 20170928
  Transmission Date: 20171128
  Serious: Yes (Other)
  Sender: FDA-Public Use
  Company Number: US-PFIZER INC-2017416682

PATIENT
  Age: 6 Decade
  Sex: Male
  Weight: 122 kg

DRUGS (1)
  1. PROTONIX [Suspect]
     Active Substance: PANTOPRAZOLE SODIUM
     Indication: GASTROOESOPHAGEAL REFLUX DISEASE
     Dosage: 40 MG, 1X/DAY
     Route: 048
     Dates: start: 2010, end: 2017

REACTIONS (10)
  - Myalgia [Not Recovered/Not Resolved]
  - Gait disturbance [Not Recovered/Not Resolved]
  - Hypokinesia [Not Recovered/Not Resolved]
  - Anorectal discomfort [Not Recovered/Not Resolved]
  - Constipation [Unknown]
  - Arthralgia [Not Recovered/Not Resolved]
  - Arthropathy [Unknown]
  - Renal cancer [Recovered/Resolved]
  - Abdominal pain [Not Recovered/Not Resolved]
  - Dyspepsia [Not Recovered/Not Resolved]

NARRATIVE: CASE EVENT DATE: 201705
